FAERS Safety Report 13958794 (Version 1)
Quarter: 2017Q3

REPORT INFORMATION
  Report Type: Spontaneous
  Country: US (occurrence: US)
  Receive Date: 20170911
  Receipt Date: 20170911
  Transmission Date: 20171128
  Serious: Yes (Other)
  Sender: FDA-Public Use
  Company Number: None

PATIENT
  Age: 67 Year
  Sex: Female
  Weight: 59.4 kg

DRUGS (3)
  1. LOSARTAN. [Concomitant]
     Active Substance: LOSARTAN
  2. 50+ VITAMINS FOR WOMEN [Concomitant]
  3. NORVASC [Suspect]
     Active Substance: AMLODIPINE BESYLATE
     Indication: DEAFNESS NEUROSENSORY
     Dosage: ?          QUANTITY:1 TABLET(S);?
     Route: 048
     Dates: start: 20170306, end: 20170324

REACTIONS (1)
  - Joint swelling [None]

NARRATIVE: CASE EVENT DATE: 20170306
